FAERS Safety Report 17102140 (Version 2)
Quarter: 2020Q1

REPORT INFORMATION
  Report Type: Report from Study
  Country: US (occurrence: US)
  Receive Date: 20191202
  Receipt Date: 20200110
  Transmission Date: 20200409
  Serious: Yes (Hospitalization)
  Sender: FDA-Public Use
  Company Number: US-ACTELION-A-NJ2018-183673

PATIENT
  Sex: Male
  Weight: 74.38 kg

DRUGS (6)
  1. OPSUMIT [Suspect]
     Active Substance: MACITENTAN
     Indication: PULMONARY HYPERTENSION
     Dosage: 10 MG, QD
     Route: 048
  2. TYVASO [Suspect]
     Active Substance: TREPROSTINIL
     Indication: PRODUCT USED FOR UNKNOWN INDICATION
     Route: 065
  3. REMODULIN [Suspect]
     Active Substance: TREPROSTINIL
     Indication: PRODUCT USED FOR UNKNOWN INDICATION
     Dosage: UNK
     Route: 065
  4. REVATIO [Concomitant]
     Active Substance: SILDENAFIL CITRATE
  5. ADEMPAS [Concomitant]
     Active Substance: RIOCIGUAT
  6. WARFARIN [Concomitant]
     Active Substance: WARFARIN

REACTIONS (18)
  - Heart rate increased [Unknown]
  - Dizziness [Unknown]
  - Pulmonary arterial hypertension [Unknown]
  - Pain [Unknown]
  - Abdominal pain upper [Unknown]
  - Atrial flutter [Unknown]
  - Malaise [Unknown]
  - Chest discomfort [Unknown]
  - Hypotension [Unknown]
  - Tachycardia [Unknown]
  - Condition aggravated [Unknown]
  - Chest pain [Unknown]
  - Dyspnoea exertional [Unknown]
  - Fatigue [Unknown]
  - Syncope [Unknown]
  - Hospitalisation [Unknown]
  - Dyspnoea [Unknown]
  - Oedema peripheral [Unknown]
